FAERS Safety Report 9332703 (Version 1)
Quarter: 2013Q2

REPORT INFORMATION
  Report Type: Spontaneous
  Country: ES (occurrence: ES)
  Receive Date: 20130606
  Receipt Date: 20130606
  Transmission Date: 20140414
  Serious: Yes (Other)
  Sender: FDA-Public Use
  Company Number: PHHY2013ES057110

PATIENT
  Age: 97 Year
  Sex: Female

DRUGS (1)
  1. EXELON [Suspect]
     Indication: DEMENTIA ALZHEIMER^S TYPE
     Dosage: 1 DF, UNK
     Route: 062
     Dates: start: 20091211, end: 20110311

REACTIONS (2)
  - Restlessness [Recovered/Resolved]
  - Hallucination, visual [Recovered/Resolved]
